FAERS Safety Report 10129168 (Version 2)
Quarter: 2015Q1

REPORT INFORMATION
  Report Type: Other
  Country: US (occurrence: US)
  Receive Date: 20140428
  Receipt Date: 20150220
  Transmission Date: 20150720
  Serious: Yes (Hospitalization, Other)
  Sender: FDA-Public Use
  Company Number: US-GSKPPD-2014GSK034931

PATIENT
  Age: 58 Year
  Sex: Male

DRUGS (8)
  1. AVANDIA [Suspect]
     Active Substance: ROSIGLITAZONE MALEATE
     Indication: DIABETES MELLITUS
     Dosage: DATES OF AVANDIA USE COULD NOT BE CONFIRMED IN RECORDS REVIEWED
     Route: 048
  2. METOPROLOL [Concomitant]
     Active Substance: METOPROLOL
     Dates: start: 20030612
  3. CLOPIDOGREL [Concomitant]
     Active Substance: CLOPIDOGREL BISULFATE
     Dates: start: 20030612
  4. DIGOXIN. [Concomitant]
     Active Substance: DIGOXIN
     Dates: start: 20030612
  5. ENOXAPARIN [Concomitant]
     Active Substance: ENOXAPARIN
     Route: 058
     Dates: start: 20030612
  6. ISOSORBIDE [Concomitant]
     Active Substance: ISOSORBIDE
     Dates: start: 20030612
  7. BENAZEPRIL [Concomitant]
     Active Substance: BENAZEPRIL\BENAZEPRIL HYDROCHLORIDE
     Dates: start: 20030612
  8. ASPIRIN. [Concomitant]
     Active Substance: ASPIRIN
     Dates: start: 20030612

REACTIONS (3)
  - Myocardial infarction [Unknown]
  - Myocardial infarction [Recovered/Resolved]
  - Cardiac failure congestive [Unknown]

NARRATIVE: CASE EVENT DATE: 20030610
